FAERS Safety Report 4431973-9 (Version None)
Quarter: 2004Q3

REPORT INFORMATION
  Report Type: 
  Country: None (occurrence: None)
  Receive Date: 20040819
  Receipt Date: 20040805
  Transmission Date: 20050211
  Serious: Yes (Other)
  Sender: FDA-Public Use
  Company Number: JP-JNJFOC-20040707567

PATIENT
  Age: 42 Year
  Sex: Male

DRUGS (5)
  1. LOPEMIN (LOPERAMIDE HYDROCHLORIDE) UNSPECIFIED [Suspect]
     Indication: DIARRHOEA
     Dosage: 3 MG, 1 IN 1 DAY, ORAL
     Route: 048
     Dates: start: 20040723, end: 20040723
  2. BUTROPIUM BROMIDE (BUTROPIUM BROMIDE) [Suspect]
     Indication: DIARRHOEA
     Dosage: 3 DOSE(S), 1 IN 1 DAY, ORAL
     Route: 048
     Dates: start: 20040723, end: 20040723
  3. LACTOMIN (LACTOBACILLUS SPOROGENS) [Concomitant]
  4. SALMETEROL XIANFOATE (SALMETEROL XINAFOATE) [Concomitant]
  5. FLUTICASONE PROPIONATE (FLUTICASONE PRIOPIONATE) [Concomitant]

REACTIONS (1)
  - TOXIC EPIDERMAL NECROLYSIS [None]
